FAERS Safety Report 25386993 (Version 3)
Quarter: 2025Q4

REPORT INFORMATION
  Report Type: Report from Study
  Country: MX (occurrence: MX)
  Receive Date: 20250602
  Receipt Date: 20251229
  Transmission Date: 20260118
  Serious: Yes (Other)
  Sender: DAIICHI
  Company Number: MX-AstraZeneca-CH-00813317A

PATIENT
  Age: 58 Year
  Sex: Female
  Weight: 54 kg

DRUGS (6)
  1. ENHERTU [Suspect]
     Active Substance: FAM-TRASTUZUMAB DERUXTECAN-NXKI
     Indication: HER2 positive breast cancer
     Dosage: 320 MG, ONCE EVERY 3 WK
     Route: 042
     Dates: start: 20240812
  2. ENHERTU [Suspect]
     Active Substance: FAM-TRASTUZUMAB DERUXTECAN-NXKI
     Dosage: UNK UNK, ONCE EVERY 3 WK
     Route: 065
     Dates: start: 20250513
  3. ENHERTU [Suspect]
     Active Substance: FAM-TRASTUZUMAB DERUXTECAN-NXKI
     Dosage: UNK, ONCE EVERY 3 WK
     Route: 065
     Dates: start: 20250627
  4. ENHERTU [Suspect]
     Active Substance: FAM-TRASTUZUMAB DERUXTECAN-NXKI
     Dosage: 300 MG, ONCE EVERY 3 WK
     Route: 065
     Dates: start: 20250808
  5. PEGFILGRASTIM [Concomitant]
     Active Substance: PEGFILGRASTIM
     Indication: Product used for unknown indication
     Dosage: 6 MG
     Route: 065
  6. LETROZOLE [Concomitant]
     Active Substance: LETROZOLE
     Indication: Product used for unknown indication
     Dosage: 2.5 MG
     Route: 065

REACTIONS (24)
  - Hepatitis [Recovering/Resolving]
  - Haematochezia [Unknown]
  - Abdominal distension [Recovered/Resolved]
  - Liver disorder [Recovering/Resolving]
  - Pain [Recovered/Resolved]
  - Fatigue [Not Recovered/Not Resolved]
  - Back pain [Recovering/Resolving]
  - Headache [Recovering/Resolving]
  - Speech disorder [Recovering/Resolving]
  - Discomfort [Unknown]
  - Nausea [Recovering/Resolving]
  - Gastritis [Recovering/Resolving]
  - Dizziness [Recovering/Resolving]
  - Hepatic enzyme increased [Not Recovered/Not Resolved]
  - Anxiety [Unknown]
  - Aspartate aminotransferase increased [Not Recovered/Not Resolved]
  - Malaise [Unknown]
  - Illness [Unknown]
  - Vomiting [Unknown]
  - Pain [Unknown]
  - Paraesthesia [Unknown]
  - Pain [Unknown]
  - Medication error [Unknown]
  - Product dose omission issue [Unknown]

NARRATIVE: CASE EVENT DATE: 20240101
